FAERS Safety Report 8024548-6 (Version None)
Quarter: 2012Q1

REPORT INFORMATION
  Report Type: 
  Country: None (occurrence: None)
  Receive Date: 20120105
  Receipt Date: 20120103
  Transmission Date: 20120608
  Serious: Yes (Hospitalization)
  Sender: FDA-Public Use
  Company Number: US-BAYER-2011-106947

PATIENT
  Age: 62 Year
  Sex: Female

DRUGS (57)
  1. FENTANYL [Concomitant]
     Dosage: UNK
     Dates: start: 20110928
  2. TRAZODONE HCL [Concomitant]
     Dosage: UNK
     Dates: start: 20111007
  3. ATENOLOL [Concomitant]
     Dosage: UNK
     Dates: start: 20090630
  4. LOVENOX [Concomitant]
     Dosage: UNK
     Dates: start: 20090301
  5. NICODERM [Concomitant]
  6. ALOE VESTA [Concomitant]
     Dosage: UNK
     Dates: start: 20111010
  7. LEVOFLOXACIN [Concomitant]
     Dosage: UNK
     Dates: start: 20110913
  8. ACETAMINOPHEN AND HYDROCODONE BITARTRATE [Concomitant]
     Dosage: UNK
     Dates: start: 20090123
  9. SULFAMETHOXAZOLE AND TRIMETHOPRIM [Concomitant]
     Dosage: UNK
     Dates: start: 20100407
  10. DICLOXACILLIN [Concomitant]
     Dosage: UNK
     Dates: start: 20111018
  11. AMLODIPINE BESYLATE [Concomitant]
     Dosage: UNK
     Dates: start: 20111010
  12. VITADYE [Concomitant]
     Dosage: UNK
     Dates: start: 20111003
  13. NEXIUM [Concomitant]
     Dosage: UNK
     Dates: start: 20110723
  14. METHADONE HCL [Concomitant]
     Dosage: UNK
     Dates: start: 20110708
  15. RAPAMUNE [Concomitant]
     Dosage: UNK
     Dates: start: 20101126
  16. PREDNISONE TAB [Concomitant]
     Dosage: UNK
     Dates: start: 20101009
  17. NIFEDIPINE [Concomitant]
     Dosage: UNK
     Dates: start: 20090611
  18. PAROXETINE [Concomitant]
     Dosage: UNK
     Dates: start: 20080721
  19. OXYCODONE [Concomitant]
     Dosage: UNK
     Dates: start: 20110920
  20. RAPAMUNE [Concomitant]
     Dosage: UNK
     Dates: start: 20100706
  21. PREDNISONE TAB [Concomitant]
     Dosage: UNK
     Dates: start: 20100424
  22. FLUOXETINE HCL [Concomitant]
     Dosage: UNK
     Dates: start: 20100907
  23. PLAVIX [Concomitant]
     Dosage: UNK
     Dates: start: 20090916
  24. CETAPHIL [BUTYL,CETYL ALCOH,PROPYL GLYC,NA+ LAURYL SULF,STEARYL AL [Concomitant]
     Dosage: UNK
     Dates: start: 20111004
  25. LORATADINE [Concomitant]
     Dosage: UNK
     Dates: start: 20111004
  26. NEXAVAR [Suspect]
     Indication: HEPATIC NEOPLASM MALIGNANT
     Dosage: 1 BID ALTERNATING WITH 1 QD
     Dates: start: 20100405
  27. FENTANYL [Concomitant]
     Dosage: UNK
     Dates: start: 20110727
  28. ASPIRIN [Concomitant]
     Dosage: UNK
     Dates: start: 20110713
  29. METHADONE HCL [Concomitant]
     Dosage: UNK
     Dates: start: 20110707
  30. SILDENAFIL [Concomitant]
     Dosage: UNK
     Dates: start: 20070907
  31. BACLOFEN [Concomitant]
     Dosage: UNK
     Dates: start: 20111003
  32. BENZODIAZEPINE [Concomitant]
  33. ACETAMINOPHEN AND HYDROCODONE BITARTRATE [Concomitant]
     Dosage: UNK
     Dates: start: 20110811
  34. ACETAMINOPHEN AND HYDROCODONE BITARTRATE [Concomitant]
     Dosage: UNK
     Dates: start: 20110920
  35. CIPROFLOXACIN [Concomitant]
     Dosage: UNK
     Dates: start: 20110727
  36. ASPIRIN [Concomitant]
     Dosage: UNK
     Dates: start: 20111010
  37. OXYCODONE [Concomitant]
     Dosage: UNK
     Dates: start: 20080804
  38. OXYCODONE [Concomitant]
     Dosage: UNK
     Dates: start: 20110226
  39. PROGRAF [Concomitant]
     Dosage: UNK
     Dates: start: 20100706
  40. GABAPENTIN [Concomitant]
     Dosage: UNK
     Dates: start: 20100428
  41. ALENDRONATE SODIUM [Concomitant]
     Dosage: UNK
     Dates: start: 20090317
  42. CEPHALEXIN [Concomitant]
     Dosage: UNK
     Dates: start: 20110829
  43. FENTANYL [Concomitant]
     Dosage: UNK
     Dates: start: 20101123
  44. FUROSEMIDE [Concomitant]
     Dosage: UNK
  45. TRAZODONE HCL [Concomitant]
     Dosage: UNK
     Dates: start: 20101103
  46. SEROQUEL [Concomitant]
     Dosage: UNK
     Dates: start: 20100907
  47. OMEPRAZOLE [Concomitant]
     Dosage: UNK
     Dates: start: 20100617
  48. ZOLPIDEM [Concomitant]
     Dosage: UNK
     Dates: start: 20090402
  49. WARFARIN SODIUM [Concomitant]
     Dosage: UNK
     Dates: start: 20090218
  50. MYFORTIC [Concomitant]
     Dosage: UNK
     Dates: start: 20111020
  51. HALOPERIDOL [Concomitant]
     Dosage: UNK
     Dates: start: 20111010
  52. SUCRALFATE [Concomitant]
     Dosage: UNK
     Dates: start: 20111004
  53. VENLAFAXINE [Concomitant]
     Dosage: UNK
     Dates: start: 20110602
  54. ATENOLOL [Concomitant]
     Dosage: UNK
     Dates: start: 20110425
  55. TRAMADOL HCL [Concomitant]
     Dosage: UNK
     Dates: start: 20100421
  56. SULFAMETHOXAZOLE AND TRIMETHOPRIM [Concomitant]
     Dosage: UNK
     Dates: start: 20111010
  57. OPIOIDS [Concomitant]

REACTIONS (4)
  - PAIN IN EXTREMITY [None]
  - DIARRHOEA [None]
  - FATIGUE [None]
  - PSYCHOTIC DISORDER [None]
